FAERS Safety Report 16263315 (Version 1)
Quarter: 2019Q2

REPORT INFORMATION
  Report Type: Spontaneous
  Country: US (occurrence: US)
  Receive Date: 20190502
  Receipt Date: 20190502
  Transmission Date: 20190711
  Serious: No
  Sender: FDA-Public Use
  Company Number: US-USPHARMA LIMITED-2018-US-000120

PATIENT
  Sex: Female

DRUGS (1)
  1. NITRO-DUR [Suspect]
     Active Substance: NITROGLYCERIN
     Indication: PRODUCT USED FOR UNKNOWN INDICATION
     Dosage: EXTENDED RELEASE FILM
     Route: 065

REACTIONS (1)
  - Skin exfoliation [Unknown]
